FAERS Safety Report 12770532 (Version 2)
Quarter: 2016Q3

REPORT INFORMATION
  Report Type: Spontaneous
  Country: TH (occurrence: TH)
  Receive Date: 20160922
  Receipt Date: 20160928
  Transmission Date: 20161109
  Serious: Yes (Other)
  Sender: FDA-Public Use
  Company Number: PHHY2016TH128928

PATIENT
  Age: 65 Year
  Sex: Male

DRUGS (5)
  1. COMTAN [Suspect]
     Active Substance: ENTACAPONE
     Indication: PARKINSON^S DISEASE
     Route: 065
  2. COMTAN [Suspect]
     Active Substance: ENTACAPONE
     Dosage: UNK, QID (7 AM, 11 AM, 4 PM AND 7 PM)
     Route: 065
  3. SINEMET [Suspect]
     Active Substance: CARBIDOPA\LEVODOPA
     Indication: PARKINSON^S DISEASE
     Route: 065
  4. MADOPAR HBS [Suspect]
     Active Substance: BENSERAZIDE HYDROCHLORIDE\LEVODOPA
     Indication: PARKINSON^S DISEASE
     Route: 065
  5. MADOPAR HBS [Suspect]
     Active Substance: BENSERAZIDE HYDROCHLORIDE\LEVODOPA
     Dosage: UNK, QID (7 AM, 11 AM, 4 PM AND 7 PM)
     Route: 065

REACTIONS (10)
  - Akinesia [Unknown]
  - Drooling [Unknown]
  - Drug effect decreased [Unknown]
  - Parkinsonian gait [Unknown]
  - Cogwheel rigidity [Unknown]
  - Hallucination, visual [Unknown]
  - Tremor [Unknown]
  - Muscle rigidity [Unknown]
  - Bradykinesia [Unknown]
  - Gait disturbance [Unknown]
